FAERS Safety Report 9515520 (Version 2)
Quarter: 2014Q4

REPORT INFORMATION
  Report Type: Spontaneous
  Country: FR (occurrence: FR)
  Receive Date: 20130911
  Receipt Date: 20141110
  Transmission Date: 20150529
  Serious: Yes (Death)
  Sender: FDA-Public Use
  Company Number: PHHY2013FR099506

PATIENT
  Age: 88 Year
  Sex: Male

DRUGS (1)
  1. ACLASTA [Suspect]
     Active Substance: ZOLEDRONIC ACID
     Indication: OSTEOPOROSIS
     Dosage: 5 MG
     Route: 042
     Dates: start: 20100107

REACTIONS (4)
  - Hyperkalaemia [Fatal]
  - Acute kidney injury [Fatal]
  - Hypotension [Fatal]
  - Abdominal pain [Fatal]

NARRATIVE: CASE EVENT DATE: 20100111
